FAERS Safety Report 16532182 (Version 3)
Quarter: 2019Q3

REPORT INFORMATION
  Report Type: Spontaneous
  Country: GB (occurrence: GB)
  Receive Date: 20190704
  Receipt Date: 20190809
  Transmission Date: 20191004
  Serious: Yes (Hospitalization, Other)
  Sender: FDA-Public Use
  Company Number: GB-ACCORD-136539

PATIENT
  Age: 52 Year
  Sex: Male

DRUGS (4)
  1. AMISULPRIDE [Suspect]
     Active Substance: AMISULPRIDE
     Indication: SCHIZOPHRENIA
  2. VALPROIC ACID. [Suspect]
     Active Substance: VALPROIC ACID
     Indication: SCHIZOPHRENIA
  3. CLOZAPINE. [Suspect]
     Active Substance: CLOZAPINE
     Indication: SCHIZOPHRENIA
  4. OMEPRAZOLE. [Concomitant]
     Active Substance: OMEPRAZOLE

REACTIONS (6)
  - Obesity [Not Recovered/Not Resolved]
  - Sleep apnoea syndrome [Unknown]
  - Pickwickian syndrome [Unknown]
  - Hypertension [Unknown]
  - Pericarditis [Recovering/Resolving]
  - Type 2 diabetes mellitus [Unknown]
